FAERS Safety Report 17435836 (Version 1)
Quarter: 2020Q1

REPORT INFORMATION
  Report Type: Spontaneous
  Country: FI (occurrence: FI)
  Receive Date: 20200219
  Receipt Date: 20200219
  Transmission Date: 20200409
  Serious: Yes (Disabling)
  Sender: FDA-Public Use
  Company Number: FI-HRAPH01-202000109

PATIENT
  Age: 23 Year
  Sex: Female

DRUGS (3)
  1. ELLAONE [Suspect]
     Active Substance: ULIPRISTAL ACETATE
     Indication: POST COITAL CONTRACEPTION
     Dosage: 30,MG,X1
     Route: 048
     Dates: start: 20200124, end: 20200124
  2. TASMINETTA [Concomitant]
     Indication: CONTRACEPTION
     Dosage: 1,DF,CYCLICAL
     Route: 048
     Dates: start: 2016
  3. TRIPTYL [Concomitant]
     Active Substance: AMITRIPTYLINE HYDROCHLORIDE
     Indication: PAIN
     Dosage: 25,MG,DAILY
     Route: 048
     Dates: start: 201909

REACTIONS (3)
  - Abdominal pain [Not Recovered/Not Resolved]
  - Back pain [Not Recovered/Not Resolved]
  - Sleep disorder [Not Recovered/Not Resolved]

NARRATIVE: CASE EVENT DATE: 20200125
